FAERS Safety Report 5383668-5 (Version None)
Quarter: 2007Q3

REPORT INFORMATION
  Report Type: 
  Country: None (occurrence: None)
  Receive Date: 20070706
  Receipt Date: 20070629
  Transmission Date: 20080115
  Serious: Yes (Death)
  Sender: FDA-Public Use
  Company Number: 2007SP013218

PATIENT
  Age: 59 Year
  Sex: Male

DRUGS (2)
  1. K-DUR (POTASSIUM CHLORIDE) (20 MEQ) [Suspect]
     Indication: DRUG USE FOR UNKNOWN INDICATION
  2. PROVENTIL [Suspect]
     Indication: DRUG USE FOR UNKNOWN INDICATION

REACTIONS (1)
  - DEATH [None]
